FAERS Safety Report 23709161 (Version 2)
Quarter: 2024Q2

REPORT INFORMATION
  Report Type: Report from Study
  Country: ES (occurrence: ES)
  Receive Date: 20240404
  Receipt Date: 20240506
  Transmission Date: 20240716
  Serious: Yes (Other)
  Sender: FDA-Public Use
  Company Number: ES-ABBVIE-5646232

PATIENT
  Age: 82 Year
  Sex: Female
  Weight: 55 kg

DRUGS (4)
  1. CARBIDOPA\LEVODOPA [Suspect]
     Active Substance: CARBIDOPA\LEVODOPA
     Indication: Parkinson^s disease
     Route: 050
     Dates: start: 20230817, end: 20240208
  2. CARBIDOPA\LEVODOPA [Suspect]
     Active Substance: CARBIDOPA\LEVODOPA
     Dosage: LAST ADMIN DATE-FEB 2024
     Route: 050
     Dates: start: 20240208
  3. CARBIDOPA\LEVODOPA [Suspect]
     Active Substance: CARBIDOPA\LEVODOPA
     Dosage: FIRST ADMIN DATE: FEB 2024
     Route: 050
     Dates: end: 20240219
  4. CARBIDOPA\LEVODOPA [Suspect]
     Active Substance: CARBIDOPA\LEVODOPA
     Dosage: DOSE REDUCTION
     Route: 050
     Dates: start: 20240219

REACTIONS (11)
  - Hypertension [Recovering/Resolving]
  - Gait disturbance [Unknown]
  - Unevaluable event [Unknown]
  - Dyskinesia [Not Recovered/Not Resolved]
  - Fall [Unknown]
  - Weight decreased [Not Recovered/Not Resolved]
  - Motor dysfunction [Unknown]
  - Nervousness [Recovering/Resolving]
  - Freezing phenomenon [Unknown]
  - Vitamin B6 decreased [Recovering/Resolving]
  - Hypotension [Unknown]

NARRATIVE: CASE EVENT DATE: 20230801
